FAERS Safety Report 8985398 (Version 1)
Quarter: 2012Q4

REPORT INFORMATION
  Report Type: 
  Country: FR (occurrence: FR)
  Receive Date: 20121226
  Receipt Date: 20121226
  Transmission Date: 20130627
  Serious: Yes (Life-Threatening, Hospitalization)
  Sender: FDA-Public Use
  Company Number: FR-PFIZER INC-2012328132

PATIENT
  Age: 30 Year
  Sex: Male

DRUGS (7)
  1. TRIATEC [Suspect]
     Indication: CARDIAC FAILURE
     Dosage: 1.25 mg (one tablet)/ day
     Route: 048
     Dates: start: 20121010, end: 20121027
  2. ALDACTONE [Concomitant]
     Dosage: UNK
  3. PREVISCAN [Concomitant]
     Dosage: UNK
  4. HEPARIN [Concomitant]
     Dosage: UNK
  5. FOLIC ACID [Concomitant]
     Dosage: UNK
  6. BISOPROLOL [Concomitant]
     Dosage: UNK
  7. ASPEGIC [Concomitant]
     Dosage: UNK

REACTIONS (3)
  - Loss of consciousness [Recovered/Resolved]
  - Hypotension [Recovered/Resolved]
  - Headache [Recovered/Resolved]
